FAERS Safety Report 9291084 (Version 2)
Quarter: 2013Q1

REPORT INFORMATION
  Report Type: Spontaneous
  Country: JP (occurrence: None)
  Receive Date: 20121017
  Receipt Date: 20130103
  Transmission Date: 20140127
  Serious: Yes (Death, Hospitalization, Other)
  Sender: FDA-Public Use
  Company Number: 2012SP002687

PATIENT
  Age: 43 Year
  Sex: Female

DRUGS (3)
  1. FLUOROURACIL (FLUOROURACIL) [Suspect]
     Indication: COLON CANCER METASTATIC
  2. OXALIPLATIN [Suspect]
     Indication: COLON CANCER METASTATIC
  3. CALCIUM FOLINATE [Suspect]
     Indication: COLON CANCER METASTATIC

REACTIONS (3)
  - Posterior reversible encephalopathy syndrome [None]
  - Colon cancer metastatic [None]
  - Malignant neoplasm progression [None]
